FAERS Safety Report 5703321-5 (Version None)
Quarter: 2008Q2

REPORT INFORMATION
  Report Type: 
  Country: None (occurrence: None)
  Receive Date: 20080411
  Receipt Date: 20080403
  Transmission Date: 20081010
  Serious: Yes (Other)
  Sender: FDA-Public Use
  Company Number: AT-PFIZER INC-2008022908

PATIENT
  Age: 77 Year
  Sex: Female
  Weight: 65 kg

DRUGS (2)
  1. CLINDAMYCIN HCL [Suspect]
     Indication: TOOTH EXTRACTION
     Route: 048
     Dates: start: 20080304, end: 20080307
  2. BLOPRESS [Concomitant]
     Route: 048

REACTIONS (2)
  - DIARRHOEA [None]
  - HYPERTENSION [None]
